FAERS Safety Report 9991582 (Version 2)
Quarter: 2014Q1

REPORT INFORMATION
  Report Type: Spontaneous
  Country: IR (occurrence: IR)
  Receive Date: 20140310
  Receipt Date: 20140311
  Transmission Date: 20141002
  Serious: Yes (Other)
  Sender: FDA-Public Use
  Company Number: IR-PFIZER INC-2014068121

PATIENT
  Age: 27 Year
  Sex: Male

DRUGS (3)
  1. ALPRAZOLAM [Suspect]
     Dosage: 20 TABLETS OF ALPRAZOLAM 0.5 MILLIGRAM
  2. CLONAZEPAM [Suspect]
     Dosage: 20 TABLETS OF CLONAZEPAM 1 MILLIGRAM
  3. CLONIDINE [Suspect]
     Dosage: 20 TABLETS OF CLONIDINE 0.1 MILLIGRAM

REACTIONS (5)
  - Intentional drug misuse [Unknown]
  - Toxicity to various agents [Unknown]
  - Agitation [Recovered/Resolved]
  - Metabolic acidosis [Recovered/Resolved]
  - Metabolic alkalosis [Recovered/Resolved]
